FAERS Safety Report 8251984-5 (Version None)
Quarter: 2012Q2

REPORT INFORMATION
  Report Type: 
  Country: None (occurrence: None)
  Receive Date: 20120402
  Receipt Date: 20120329
  Transmission Date: 20120825
  Serious: Yes (Life-Threatening)
  Sender: FDA-Public Use
  Company Number: PHHY2012GB027230

PATIENT
  Age: 67 Year
  Sex: Female

DRUGS (9)
  1. ATORVASTATIN [Concomitant]
  2. DOXAZOSIN MESYLATE [Concomitant]
  3. ATENOLOL [Concomitant]
  4. BENDROFLUMETHIAZIDE [Concomitant]
     Dosage: UNK
  5. LISINOPRIL [Concomitant]
  6. CLOPIDOGREL [Concomitant]
  7. FOLIC ACID [Concomitant]
  8. METHOTREXATE [Suspect]
  9. LANSOPRAZOLE [Concomitant]

REACTIONS (1)
  - BASAL CELL CARCINOMA [None]
